FAERS Safety Report 8283307-X (Version None)
Quarter: 2012Q2

REPORT INFORMATION
  Report Type: 
  Country: None (occurrence: None)
  Receive Date: 20120413
  Receipt Date: 20120409
  Transmission Date: 20120825
  Serious: Yes (Life-Threatening)
  Sender: FDA-Public Use
  Company Number: JP-ELI_LILLY_AND_COMPANY-JP201204002606

PATIENT
  Sex: Female

DRUGS (2)
  1. TS 1 [Concomitant]
     Indication: PANCREATIC CARCINOMA
     Route: 048
  2. GEMZAR [Suspect]
     Indication: PANCREATIC CARCINOMA
     Route: 042

REACTIONS (2)
  - MYOCARDIAL INFARCTION [None]
  - CARDIOGENIC SHOCK [None]
